FAERS Safety Report 6820776-3 (Version None)
Quarter: 2010Q3

REPORT INFORMATION
  Report Type: 
  Country: None (occurrence: None)
  Receive Date: 20100707
  Receipt Date: 20070531
  Transmission Date: 20110219
  Serious: Yes (Other)
  Sender: FDA-Public Use
  Company Number: US-PFIZER INC-2007045091

PATIENT
  Sex: Female
  Weight: 52.2 kg

DRUGS (1)
  1. ZOLOFT [Suspect]
     Indication: POSTPARTUM DEPRESSION
     Dates: start: 19990101, end: 19990101

REACTIONS (5)
  - FEAR [None]
  - INCREASED APPETITE [None]
  - PSYCHOTIC DISORDER [None]
  - SUICIDAL IDEATION [None]
  - WEIGHT INCREASED [None]
